FAERS Safety Report 11273955 (Version 1)
Quarter: 2015Q3

REPORT INFORMATION
  Report Type: Report from Study
  Country: US (occurrence: US)
  Receive Date: 20150715
  Receipt Date: 20150715
  Transmission Date: 20151125
  Serious: No
  Sender: FDA-Public Use
  Company Number: US-CELGENEUS-USA-2015065817

PATIENT
  Sex: Male

DRUGS (2)
  1. THALOMID [Suspect]
     Active Substance: THALIDOMIDE
     Indication: MALIGNANT MELANOMA STAGE IV
     Route: 048
  2. TEMADOR [Concomitant]
     Active Substance: TEMAZEPAM
     Indication: MALIGNANT MELANOMA STAGE IV
     Route: 065

REACTIONS (3)
  - Gastrooesophageal reflux disease [Unknown]
  - Stress [Unknown]
  - Anxiety [Unknown]
